FAERS Safety Report 6410748-5 (Version None)
Quarter: 2009Q4

REPORT INFORMATION
  Report Type: 
  Country: None (occurrence: None)
  Receive Date: 20091020
  Receipt Date: 20091020
  Transmission Date: 20100525
  Serious: Yes (Hospitalization)
  Sender: FDA-Public Use
  Company Number: None

PATIENT
  Age: 46 Year
  Sex: Male
  Weight: 56.3 kg

DRUGS (1)
  1. INNOHEP [Suspect]
     Indication: PULMONARY EMBOLISM
     Dosage: 175 UNITS/KG/DAY Q DAY SUB-CUTANEOUS
     Route: 058
     Dates: start: 20090616

REACTIONS (4)
  - BONE MARROW FAILURE [None]
  - HAEMATURIA [None]
  - MALIGNANT NEOPLASM PROGRESSION [None]
  - METASTATIC RENAL CELL CARCINOMA [None]
